FAERS Safety Report 25078462 (Version 4)
Quarter: 2025Q3

REPORT INFORMATION
  Report Type: Report from Study
  Country: JP (occurrence: JP)
  Receive Date: 20250314
  Receipt Date: 20250829
  Transmission Date: 20251021
  Serious: Yes (Hospitalization)
  Sender: EISAI
  Company Number: JP-Eisai-202415908_LEQ_P_1

PATIENT
  Age: 75 Year
  Sex: Female
  Weight: 59.2 kg

DRUGS (5)
  1. LEQEMBI [Suspect]
     Active Substance: LECANEMAB-IRMB
     Indication: Dementia Alzheimer^s type
     Route: 042
     Dates: start: 20240828, end: 2025
  2. LEQEMBI [Suspect]
     Active Substance: LECANEMAB-IRMB
     Route: 042
     Dates: start: 20250212, end: 20250226
  3. AMLODIPINE [Concomitant]
     Active Substance: AMLODIPINE BESYLATE
     Indication: Hypertension
     Route: 048
  4. EXELON [Concomitant]
     Active Substance: RIVASTIGMINE TARTRATE
     Indication: Dementia Alzheimer^s type
     Route: 062
  5. RISPERIDONE [Concomitant]
     Active Substance: RISPERIDONE
     Indication: Dementia Alzheimer^s type
     Route: 048

REACTIONS (4)
  - Infusion related reaction [Recovering/Resolving]
  - Erythema [Recovering/Resolving]
  - Hot flush [Recovering/Resolving]
  - Pancreatic carcinoma [Unknown]

NARRATIVE: CASE EVENT DATE: 20250101
